FAERS Safety Report 13052818 (Version 1)
Quarter: 2016Q4

REPORT INFORMATION
  Report Type: Spontaneous
  Country: GB (occurrence: GB)
  Receive Date: 20161221
  Receipt Date: 20161221
  Transmission Date: 20170207
  Serious: Yes (Hospitalization)
  Sender: FDA-Public Use
  Company Number: GB-CONCORDIA PHARMACEUTICALS INC.-GSH201612-006404

PATIENT
  Age: 77 Year
  Sex: Male
  Weight: 94 kg

DRUGS (1)
  1. PREDNISOLONE. [Suspect]
     Active Substance: PREDNISOLONE
     Route: 048
     Dates: start: 20161120, end: 20161124

REACTIONS (4)
  - Vomiting [Unknown]
  - Product substitution issue [Unknown]
  - Gastritis [Recovered/Resolved]
  - Abdominal discomfort [Unknown]
